FAERS Safety Report 9369597 (Version 8)
Quarter: 2014Q2

REPORT INFORMATION
  Report Type: Report from Study
  Country: DE (occurrence: DE)
  Receive Date: 20130626
  Receipt Date: 20140408
  Transmission Date: 20141212
  Serious: Yes (Hospitalization, Other)
  Sender: FDA-Public Use
  Company Number: DE-ROCHE-1096803

PATIENT
  Age: 75 Year
  Sex: Male
  Weight: 75.3 kg

DRUGS (19)
  1. VEMURAFENIB [Suspect]
     Indication: MALIGNANT MELANOMA
     Dosage: LAST DOSE PRIOR TO SAE ON 02/MAR/2012
     Route: 048
     Dates: start: 20111004
  2. VEMURAFENIB [Suspect]
     Dosage: DATE OF LAST DOSE PRIOR TO SAE: 19/MAR/2012
     Route: 048
     Dates: start: 20120305
  3. VEMURAFENIB [Suspect]
     Dosage: DATE OF LAST DOSE PRIOR TO SAE: 23/APR/2012
     Route: 048
     Dates: start: 20120320
  4. VEMURAFENIB [Suspect]
     Dosage: DATE OF LAST DOSE PRIOR TO SAE: 15/MAY/2012, 960MG AM AND 720- MG PM
     Route: 048
     Dates: start: 20120424
  5. VEMURAFENIB [Suspect]
     Dosage: DATE OF LAST DOSE PRIOR TO SAE: 05/DEC/2012
     Route: 048
     Dates: start: 20120516
  6. BORO-SCOPOL [Concomitant]
     Dosage: 1 APPLICATION
     Route: 065
     Dates: start: 20130623, end: 20130629
  7. ACULAR [Concomitant]
     Dosage: 4 APPLICATIONS
     Route: 065
     Dates: start: 20121205, end: 20130506
  8. MYDRIATICUM [Concomitant]
     Dosage: 1 APPLICATION
     Route: 065
     Dates: start: 20121205, end: 20130506
  9. NEO-SYNEPHRINE EYE DROPS [Concomitant]
     Dosage: 1 APPLICATION
     Route: 065
     Dates: start: 20121205, end: 20130506
  10. PSORCUTAN BETA [Concomitant]
     Dosage: 1 APPLICATION
     Route: 065
     Dates: start: 20120904
  11. EXCIPIAL U LIPOLOTION [Concomitant]
     Dosage: 1 APPLICATION
     Route: 065
     Dates: start: 20121127, end: 20130122
  12. CANDIO HERMAL [Concomitant]
     Dosage: 1 APPLICATION
     Route: 065
     Dates: start: 20121127, end: 20130102
  13. CARVEDILOL [Concomitant]
     Route: 065
     Dates: start: 201212
  14. CLEXANE [Concomitant]
     Route: 065
     Dates: start: 201212, end: 20130118
  15. ASS [Concomitant]
     Route: 065
     Dates: start: 20130118
  16. CLOPIDOGREL [Concomitant]
     Route: 065
     Dates: start: 20130118, end: 20130215
  17. MOMETASONE [Concomitant]
     Dosage: 1 APPLICATION
     Route: 065
     Dates: start: 20130122
  18. PANTOPRAZOL [Concomitant]
     Route: 065
     Dates: start: 201302, end: 20130405
  19. NEUREXAN [Concomitant]
     Dosage: 1 TABLET
     Route: 065
     Dates: start: 2010, end: 20120221

REACTIONS (3)
  - Cataract [Recovering/Resolving]
  - Retinal detachment [Recovering/Resolving]
  - Keratoacanthoma [Recovered/Resolved]
